FAERS Safety Report 6203239-8 (Version None)
Quarter: 2009Q2

REPORT INFORMATION
  Report Type: 
  Country: None (occurrence: None)
  Receive Date: 20090527
  Receipt Date: 20090516
  Transmission Date: 20091009
  Serious: Yes (Hospitalization, Other)
  Sender: FDA-Public Use
  Company Number: GB-ROCHE-633714

PATIENT
  Sex: Female
  Weight: 125.2 kg

DRUGS (1)
  1. ORLISTAT [Suspect]
     Indication: OBESITY
     Route: 048
     Dates: start: 20090130

REACTIONS (3)
  - ACCIDENT [None]
  - CHEST PAIN [None]
  - DYSPNOEA [None]
